FAERS Safety Report 16509180 (Version 1)
Quarter: 2019Q3

REPORT INFORMATION
  Report Type: Spontaneous
  Country: TR (occurrence: TR)
  Receive Date: 20190702
  Receipt Date: 20190702
  Transmission Date: 20191004
  Serious: Yes (Hospitalization)
  Sender: FDA-Public Use
  Company Number: TR-TEVA-2019-TR-1070282

PATIENT
  Age: 35 Year
  Sex: Female

DRUGS (2)
  1. ALBUTEROL. [Concomitant]
     Active Substance: ALBUTEROL
     Indication: ASTHMA
     Dosage: RECEIVED AEROSOL, THREE TIMES AT AN INTERVAL OF 20 MINUTES
     Route: 055
  2. IPRATROPIUM BROMIDE. [Suspect]
     Active Substance: IPRATROPIUM BROMIDE
     Indication: ASTHMA
     Dosage: RECEIVED AEROSOL, THREE TIMES AT AN INTERVAL OF 20 MINUTES
     Route: 055

REACTIONS (1)
  - Pupils unequal [Recovered/Resolved]
